FAERS Safety Report 20591146 (Version 1)
Quarter: 2022Q1

REPORT INFORMATION
  Report Type: Spontaneous
  Country: CZ (occurrence: CZ)
  Receive Date: 20220314
  Receipt Date: 20220314
  Transmission Date: 20220423
  Serious: Yes (Life-Threatening, Other)
  Sender: FDA-Public Use
  Company Number: CZ-009507513-1501CZE002662

PATIENT
  Age: 11 Year
  Sex: Female

DRUGS (14)
  1. FENOFIBRATE [Suspect]
     Active Substance: FENOFIBRATE
     Indication: Oligoastrocytoma
     Dosage: UNK
  2. FENOFIBRATE [Suspect]
     Active Substance: FENOFIBRATE
     Indication: Spinal cord neoplasm
  3. VITAMIN D [Suspect]
     Active Substance: VITAMIN D NOS
     Indication: Spinal cord neoplasm
     Dosage: UNK
  4. VITAMIN D [Suspect]
     Active Substance: VITAMIN D NOS
     Indication: Oligoastrocytoma
  5. TEMOZOLOMIDE [Suspect]
     Active Substance: TEMOZOLOMIDE
     Indication: Oligoastrocytoma
     Dosage: 15 MILLIGRAM/SQ. METER, QD (REDUCED TO 50%)
     Route: 048
  6. TEMOZOLOMIDE [Suspect]
     Active Substance: TEMOZOLOMIDE
     Indication: Spinal cord neoplasm
     Dosage: 30 MILLIGRAM/SQ. METER, QD
     Route: 048
  7. TRETINOIN [Suspect]
     Active Substance: TRETINOIN
     Indication: Oligoastrocytoma
     Dosage: UNK
  8. TRETINOIN [Suspect]
     Active Substance: TRETINOIN
     Indication: Spinal cord neoplasm
  9. BEVACIZUMAB [Suspect]
     Active Substance: BEVACIZUMAB
     Indication: Spinal cord neoplasm
     Dosage: UNK
  10. BEVACIZUMAB [Suspect]
     Active Substance: BEVACIZUMAB
     Indication: Oligoastrocytoma
  11. ETOPOSIDE [Suspect]
     Active Substance: ETOPOSIDE
     Indication: Spinal cord neoplasm
     Dosage: 25 MILLIGRAM/SQ. METER, QD
  12. ETOPOSIDE [Suspect]
     Active Substance: ETOPOSIDE
     Indication: Oligoastrocytoma
     Dosage: 12.5 MILLIGRAM/SQ. METER, QD
  13. CELECOXIB [Suspect]
     Active Substance: CELECOXIB
     Indication: Spinal cord neoplasm
     Dosage: UNK
  14. CELECOXIB [Suspect]
     Active Substance: CELECOXIB
     Indication: Oligoastrocytoma

REACTIONS (2)
  - Product administration error [Unknown]
  - Myelosuppression [Unknown]
